FAERS Safety Report 9216182 (Version 2)
Quarter: 2013Q2

REPORT INFORMATION
  Report Type: Report from Study
  Country: US (occurrence: US)
  Receive Date: 20130408
  Receipt Date: 20130625
  Transmission Date: 20140414
  Serious: Yes (Hospitalization)
  Sender: FDA-Public Use
  Company Number: US-JNJFOC-20130400043

PATIENT
  Age: 42 Year
  Sex: Male
  Weight: 138.9 kg

DRUGS (5)
  1. APAP/DIPHENHYDRAMINE [Suspect]
     Indication: PRODUCT USED FOR UNKNOWN INDICATION
     Route: 048
  2. IBUPROFEN [Suspect]
     Indication: BACK PAIN
     Dosage: 4-5 TABS
     Route: 048
     Dates: start: 201303
  3. APAP/HYDROCODONE [Suspect]
     Indication: BACK PAIN
     Dosage: 5MG/500MG 8-12 PILLS PER DAY
     Route: 048
     Dates: start: 201303
  4. SERTRALINE [Concomitant]
  5. ZOLPIDEM [Concomitant]

REACTIONS (4)
  - Overdose [Recovered/Resolved]
  - Transaminases increased [Recovered/Resolved]
  - Abdominal pain [Recovered/Resolved]
  - Vomiting [Recovered/Resolved]
